FAERS Safety Report 18172051 (Version 1)
Quarter: 2020Q3

REPORT INFORMATION
  Report Type: Spontaneous
  Country: US (occurrence: US)
  Receive Date: 20200819
  Receipt Date: 20200819
  Transmission Date: 20201103
  Serious: Yes (Other)
  Sender: FDA-Public Use
  Company Number: US-PROCTER_AND_GAMBLE-GS20094251

PATIENT
  Age: 28 Year
  Sex: Male

DRUGS (3)
  1. OLD SPICE FRESHER COLLECTION FIJI INVISIBLE [Suspect]
     Active Substance: ALUMINUM ZIRCONIUM TRICHLOROHYDREX GLY
     Dosage: 1 SWIPE UNDER EACH ARM, ONCE
     Route: 061
     Dates: end: 20200802
  2. OLD SPICE KRAKENGARD [Suspect]
     Active Substance: ALUMINUM ZIRCONIUM TRICHLOROHYDREX GLY
     Dosage: ONE SWIPE EACH ARM, ONCE
     Route: 061
     Dates: end: 20200802
  3. OLD SPICE FRESHER COLLECTION TIMBER WITH MINT [Suspect]
     Active Substance: ALUMINUM ZIRCONIUM TRICHLOROHYDREX GLY
     Dosage: 1 SWIPE EACH ARM, ONCE
     Route: 061
     Dates: end: 20200802

REACTIONS (1)
  - Third degree chemical burn of skin [Not Recovered/Not Resolved]

NARRATIVE: CASE EVENT DATE: 20200801
